FAERS Safety Report 9148948 (Version 1)
Quarter: 2013Q1

REPORT INFORMATION
  Report Type: Report from Study
  Country: US (occurrence: US)
  Receive Date: 20130308
  Receipt Date: 20130308
  Transmission Date: 20140127
  Serious: No
  Sender: FDA-Public Use
  Company Number: US-009507513-1303USA003499

PATIENT
  Sex: Female

DRUGS (5)
  1. BOCEPREVIR [Suspect]
     Indication: CHRONIC HEPATITIS C
     Dosage: 1 DF, TID
     Dates: start: 20120415
  2. RIBAVIRIN [Suspect]
     Indication: CHRONIC HEPATITIS C
     Dosage: 1000 MG
     Dates: start: 20120415
  3. PEGASYS [Suspect]
     Indication: CHRONIC HEPATITIS C
     Dosage: 180 MICROGRAM, QW
     Dates: start: 20120415
  4. FLUTICASONE PROPIONATE (+) SALMETEROL XINAFOATE [Concomitant]
     Dosage: 250/50 DAILY
  5. MONTELUKAST SODIUM [Concomitant]
     Dosage: 10 MG, QD

REACTIONS (3)
  - Bronchitis [Unknown]
  - Cough [Unknown]
  - Nausea [Unknown]
